FAERS Safety Report 24206640 (Version 1)
Quarter: 2024Q3

REPORT INFORMATION
  Report Type: Spontaneous
  Country: FR (occurrence: FR)
  Receive Date: 20240813
  Receipt Date: 20240813
  Transmission Date: 20241017
  Serious: No
  Sender: JAZZ
  Company Number: FR-JAZZ PHARMACEUTICALS-2023-FR-017244

PATIENT

DRUGS (1)
  1. VYXEOS [Suspect]
     Active Substance: CYTARABINE\DAUNORUBICIN
     Indication: Acute myeloid leukaemia
     Dosage: 77 MG OF DAUNORUBICINE
     Route: 042
     Dates: start: 20230713, end: 20230719

REACTIONS (2)
  - Rash [Recovering/Resolving]
  - Liver function test abnormal [Recovering/Resolving]

NARRATIVE: CASE EVENT DATE: 20230718
